FAERS Safety Report 9408939 (Version 1)
Quarter: 2013Q3

REPORT INFORMATION
  Report Type: Spontaneous
  Country: US (occurrence: US)
  Receive Date: 20130719
  Receipt Date: 20130719
  Transmission Date: 20140515
  Serious: Yes (Hospitalization, Other)
  Sender: FDA-Public Use
  Company Number: US-SHIRE-ALL1-2013-04788

PATIENT
  Age: 37 Year
  Sex: Female
  Weight: 49.89 kg

DRUGS (1)
  1. VYVANSE [Suspect]
     Indication: ATTENTION DEFICIT/HYPERACTIVITY DISORDER
     Dosage: 40 MG, 1X/DAY:QD
     Route: 048
     Dates: start: 201305

REACTIONS (4)
  - Pulmonary embolism [Not Recovered/Not Resolved]
  - Personality change [Not Recovered/Not Resolved]
  - Abnormal loss of weight [Unknown]
  - Decreased appetite [Unknown]
